FAERS Safety Report 16197539 (Version 2)
Quarter: 2019Q2

REPORT INFORMATION
  Report Type: Spontaneous
  Country: US (occurrence: US)
  Receive Date: 20190415
  Receipt Date: 20190418
  Transmission Date: 20190711
  Serious: No
  Sender: FDA-Public Use
  Company Number: US-ASTRAZENECA-2019SE23780

PATIENT
  Age: 906 Month
  Sex: Female
  Weight: 79.4 kg

DRUGS (2)
  1. BLOOD THINNER [Concomitant]
     Active Substance: UNSPECIFIED INGREDIENT
  2. BYDUREON [Suspect]
     Active Substance: EXENATIDE
     Indication: TYPE 2 DIABETES MELLITUS
     Route: 065
     Dates: start: 201901

REACTIONS (15)
  - Dehydration [Unknown]
  - Wrong technique in device usage process [Unknown]
  - Weight decreased [Unknown]
  - Pruritus [Not Recovered/Not Resolved]
  - Circumstance or information capable of leading to medication error [Unknown]
  - Back pain [Not Recovered/Not Resolved]
  - Mass [Recovering/Resolving]
  - Rash [Not Recovered/Not Resolved]
  - Injection site haemorrhage [Recovered/Resolved]
  - Intentional device misuse [Unknown]
  - Kidney infection [Unknown]
  - Chromaturia [Unknown]
  - Injection site pain [Recovered/Resolved]
  - Injection site extravasation [Unknown]
  - Device issue [Unknown]

NARRATIVE: CASE EVENT DATE: 2019
